FAERS Safety Report 15652709 (Version 2)
Quarter: 2018Q4

REPORT INFORMATION
  Report Type: Spontaneous
  Country: CH (occurrence: CH)
  Receive Date: 20181123
  Receipt Date: 20181126
  Transmission Date: 20190205
  Serious: Yes (Hospitalization, Other)
  Sender: FDA-Public Use
  Company Number: CH-009507513-1811CHE006659

PATIENT
  Age: 27 Year
  Sex: Female

DRUGS (1)
  1. NUVARING [Suspect]
     Active Substance: ETHINYL ESTRADIOL\ETONOGESTREL
     Indication: CHEMICAL CONTRACEPTION
     Dosage: VAGINAL RING
     Route: 067

REACTIONS (11)
  - Feeling guilty [Unknown]
  - Abdominal pain [Unknown]
  - Unintended pregnancy [Recovered/Resolved]
  - Anxiety [Unknown]
  - Weight increased [Unknown]
  - Crying [Unknown]
  - Perinatal depression [Unknown]
  - Menstrual disorder [Not Recovered/Not Resolved]
  - Pregnancy with contraceptive device [Recovered/Resolved]
  - Panic attack [Unknown]
  - Feeling abnormal [Unknown]
